FAERS Safety Report 23680846 (Version 1)
Quarter: 2024Q1

REPORT INFORMATION
  Report Type: Spontaneous
  Country: US (occurrence: US)
  Receive Date: 20240328
  Receipt Date: 20240328
  Transmission Date: 20240409
  Serious: No
  Sender: FDA-Public Use
  Company Number: US-PRINSTON PHARMACEUTICAL INC.-2023PRN00541

PATIENT
  Sex: Male

DRUGS (2)
  1. BENAZEPRIL [Suspect]
     Active Substance: BENAZEPRIL HYDROCHLORIDE
     Indication: Blood pressure abnormal
     Dosage: UNK
     Dates: start: 2020
  2. FENOFIBRATE [Concomitant]
     Active Substance: FENOFIBRATE

REACTIONS (1)
  - Blood potassium increased [Unknown]
